FAERS Safety Report 10305816 (Version 1)
Quarter: 2014Q3

REPORT INFORMATION
  Report Type: Spontaneous
  Country: US (occurrence: None)
  Receive Date: 20140711
  Receipt Date: 20140711
  Transmission Date: 20150326
  Serious: Yes (Hospitalization)
  Sender: FDA-Public Use
  Company Number: FK201402695

PATIENT
  Age: 56 Year
  Sex: Male

DRUGS (2)
  1. GEMCITABINE [Suspect]
     Active Substance: GEMCITABINE\GEMCITABINE HYDROCHLORIDE
     Indication: TUMOUR INVASION
     Dosage: 1000 MG/M2, DAYS 1,8,15 ON A 28-DAY CYCLE (6 CYCLE), INTRAVENOUS (NOT OTHERWISE SPECIFIED)
     Route: 042
  2. GEMCITABINE [Suspect]
     Active Substance: GEMCITABINE\GEMCITABINE HYDROCHLORIDE
     Indication: LYMPHOMA
     Dosage: 1000 MG/M2, DAYS 1,8,15 ON A 28-DAY CYCLE (6 CYCLE), INTRAVENOUS (NOT OTHERWISE SPECIFIED)
     Route: 042

REACTIONS (18)
  - Dyspnoea paroxysmal nocturnal [None]
  - Venous pressure jugular increased [None]
  - Heart sounds abnormal [None]
  - Cardiac murmur [None]
  - Fatigue [None]
  - Fluid overload [None]
  - Hypokinesia [None]
  - Mitral valve incompetence [None]
  - Dyspnoea exertional [None]
  - Rales [None]
  - Pleural effusion [None]
  - Orthopnoea [None]
  - Cardiomegaly [None]
  - Cardiomyopathy [None]
  - Condition aggravated [None]
  - Oedema [None]
  - Cardiac failure congestive [None]
  - Pancreatic carcinoma recurrent [None]
